FAERS Safety Report 7658348-3 (Version None)
Quarter: 2011Q3

REPORT INFORMATION
  Report Type: 
  Country: None (occurrence: None)
  Receive Date: 20110802
  Receipt Date: 20110722
  Transmission Date: 20111222
  Serious: Yes (Disabling, Other)
  Sender: FDA-Public Use
  Company Number: ACO_26074_2011

PATIENT
  Age: 47 Year
  Sex: Female

DRUGS (8)
  1. JUICE PLUS (AMYLASE, ASCORBIC ACID, CELLULASE, FOLIC ACID,LIPASE, PROT [Concomitant]
  2. RENAFOOD [Concomitant]
  3. VESICARE [Concomitant]
  4. VITAMIN D [Concomitant]
  5. AMPYRA [Suspect]
     Indication: GAIT DISTURBANCE
     Dosage: 10 MG, BID, ORAL
     Route: 048
     Dates: start: 20110421, end: 20110622
  6. MULTIPLE VITAMINS (ASCORBIC ACID, ERGOCALCIFEROL, FOLIC ACID, RETINOL, [Concomitant]
  7. ACTIVE NUTRIENTS [Concomitant]
  8. RENATROPHIN PMG [Concomitant]

REACTIONS (8)
  - WALKING AID USER [None]
  - DIZZINESS [None]
  - GAIT DISTURBANCE [None]
  - BALANCE DISORDER [None]
  - CONDITION AGGRAVATED [None]
  - DYSPHAGIA [None]
  - ABASIA [None]
  - PARAESTHESIA [None]
